FAERS Safety Report 6297790-2 (Version None)
Quarter: 2009Q3

REPORT INFORMATION
  Report Type: 
  Country: None (occurrence: None)
  Receive Date: 20090805
  Receipt Date: 20090706
  Transmission Date: 20100115
  Serious: No
  Sender: FDA-Public Use
  Company Number: US-BAYER-200912100BCC

PATIENT
  Sex: Female

DRUGS (1)
  1. FINACEA [Suspect]
     Indication: UNEVALUABLE EVENT
     Route: 061

REACTIONS (1)
  - ADVERSE EVENT [None]
